FAERS Safety Report 6661732-8 (Version None)
Quarter: 2010Q1

REPORT INFORMATION
  Report Type: 
  Country: None (occurrence: None)
  Receive Date: 20100331
  Receipt Date: 20090530
  Transmission Date: 20100710
  Serious: Yes (Hospitalization)
  Sender: FDA-Public Use
  Company Number: US-BRISTOL-MYERS SQUIBB COMPANY-14631931

PATIENT
  Age: 56 Year
  Sex: Female

DRUGS (6)
  1. ERBITUX [Suspect]
     Indication: COLORECTAL CANCER
     Dosage: LOADING DOSE 400MG 250MG/WK TILL 9TH CYCLE. 200MG FROM 9TH-16TH CYCLE(DOSE REDUCED).
     Route: 042
     Dates: start: 20081216, end: 20081216
  2. PREMARIN [Concomitant]
  3. PROZAC [Concomitant]
  4. BENICAR [Concomitant]
  5. LASIX [Concomitant]
  6. CERATE [Concomitant]

REACTIONS (4)
  - DIARRHOEA [None]
  - HYPOMAGNESAEMIA [None]
  - NEUTROPENIA [None]
  - RASH [None]
